FAERS Safety Report 11121467 (Version 1)
Quarter: 2015Q2

REPORT INFORMATION
  Report Type: Spontaneous
  Country: TR (occurrence: None)
  Receive Date: 20150515
  Receipt Date: 20150515
  Transmission Date: 20150821
  Serious: Yes (Hospitalization)
  Sender: FDA-Public Use
  Company Number: FK201502223

PATIENT
  Age: 42 Year
  Sex: Female

DRUGS (1)
  1. VALPROATE (MANUFACTURER UNKNOWN) (VALPROATE SODIUM) (VALPROATE SODIUM) [Suspect]
     Active Substance: VALPROATE SODIUM
     Indication: EPILEPSY
     Dosage: 1250 MG, 1 IN 1 D, UNKNOWN

REACTIONS (4)
  - Anaemia [None]
  - Pericardial effusion [None]
  - C-reactive protein increased [None]
  - Pleural effusion [None]
